FAERS Safety Report 7724864-9 (Version None)
Quarter: 2011Q3

REPORT INFORMATION
  Report Type: 
  Country: None (occurrence: None)
  Receive Date: 20110829
  Receipt Date: 20110824
  Transmission Date: 20111222
  Serious: Yes (Death)
  Sender: FDA-Public Use
  Company Number: OSCN-PR-1108S-0172

PATIENT
  Sex: Female

DRUGS (1)
  1. OMNISCAN [Suspect]
     Dosage: SINGLE DOSE,
     Dates: start: 20021127, end: 20021127

REACTIONS (1)
  - NEPHROGENIC SYSTEMIC FIBROSIS [None]
